FAERS Safety Report 4283592-5 (Version None)
Quarter: 2004Q1

REPORT INFORMATION
  Report Type: 
  Country: None (occurrence: None)
  Receive Date: 20040202
  Receipt Date: 20040121
  Transmission Date: 20041129
  Serious: Yes (Life-Threatening)
  Sender: FDA-Public Use
  Company Number: GB-GLAXOSMITHKLINE-B0320508A

PATIENT
  Age: 65 Year
  Sex: Female

DRUGS (2)
  1. ZOFRAN [Suspect]
     Indication: PROPHYLAXIS OF NAUSEA AND VOMITING
     Dosage: 4MG PER DAY
     Route: 042
     Dates: start: 20031220, end: 20031221
  2. SEVREDOL [Concomitant]
     Route: 065
     Dates: start: 20031220, end: 20031220

REACTIONS (5)
  - BLOOD PRESSURE DECREASED [None]
  - CONVULSION [None]
  - LOSS OF CONSCIOUSNESS [None]
  - RASH [None]
  - RESPIRATORY ARREST [None]
